FAERS Safety Report 5577976-2 (Version None)
Quarter: 2007Q4

REPORT INFORMATION
  Report Type: 
  Country: None (occurrence: None)
  Receive Date: 20071130
  Receipt Date: 20070808
  Transmission Date: 20080405
  Serious: No
  Sender: FDA-Public Use
  Company Number: US200707000474

PATIENT
  Age: 66 Year
  Sex: Male

DRUGS (12)
  1. BYETTA [Suspect]
     Indication: TYPE 2 DIABETES MELLITUS
     Dosage: 10 UG, 2/D, SUBCUTANEOUS ; 5 UG, 2/D, SUBCUTANEOUS
     Route: 058
     Dates: start: 20070210, end: 20070420
  2. BYETTA [Suspect]
     Indication: TYPE 2 DIABETES MELLITUS
     Dosage: 10 UG, 2/D, SUBCUTANEOUS ; 5 UG, 2/D, SUBCUTANEOUS
     Route: 058
     Dates: start: 20070421
  3. METFORMIN HCL [Concomitant]
  4. ACTOS [Concomitant]
  5. RAMIPRIL [Concomitant]
  6. COREG [Concomitant]
  7. DIGOXIN [Concomitant]
  8. FLOMAX [Concomitant]
  9. LEVITRA [Concomitant]
  10. LOVASTATIN [Concomitant]
  11. WARFARIN SODIUM [Concomitant]
  12. FISH OIL (FISH OIL) [Concomitant]

REACTIONS (1)
  - BLOOD GLUCOSE INCREASED [None]
